FAERS Safety Report 24459572 (Version 1)
Quarter: 2024Q4

REPORT INFORMATION
  Report Type: Report from Study
  Country: CA (occurrence: CA)
  Receive Date: 20241018
  Receipt Date: 20241018
  Transmission Date: 20250115
  Serious: No
  Sender: ROCHE
  Company Number: CA-ROCHE-3550501

PATIENT
  Sex: Female

DRUGS (11)
  1. RITUXAN [Suspect]
     Active Substance: RITUXIMAB
     Indication: Rheumatoid arthritis
     Dosage: DRUG DOSE FIRST ADMINISTERED IS 1000 MG MILLIGRAM(S)MOREDOSAGEINFO IS DAY 1, 15
     Route: 041
     Dates: start: 20181011
  2. ADALAT [Concomitant]
     Active Substance: NIFEDIPINE
  3. ALENDRONATE [Concomitant]
     Active Substance: ALENDRONATE SODIUM
  4. CELEBREX [Concomitant]
     Active Substance: CELECOXIB
     Dosage: DRUG DOSE FIRST ADMINISTERED IS 300 MG MILLIGRAM(S)?MOREDOSAGEINFO IS REDUCING TO 200MG
  5. COZAAR [Concomitant]
     Active Substance: LOSARTAN POTASSIUM
  6. OMNARIS [Concomitant]
     Active Substance: CICLESONIDE
  7. PREDNISONE [Concomitant]
     Active Substance: PREDNISONE
  8. PROZAC [Concomitant]
     Active Substance: FLUOXETINE HYDROCHLORIDE
  9. RESTASIS [Concomitant]
     Active Substance: CYCLOSPORINE
  10. TELMISARTAN [Concomitant]
     Active Substance: TELMISARTAN
  11. VAGIFEM [Concomitant]
     Active Substance: ESTRADIOL

REACTIONS (1)
  - Smear test [Unknown]
